FAERS Safety Report 9553832 (Version 1)
Quarter: 2013Q3

REPORT INFORMATION
  Report Type: Spontaneous
  Country: US (occurrence: US)
  Receive Date: 20130925
  Receipt Date: 20130925
  Transmission Date: 20140515
  Serious: Yes (Hospitalization, Other)
  Sender: FDA-Public Use
  Company Number: US-ACTAVIS-2013-16639

PATIENT
  Sex: 0

DRUGS (2)
  1. AMETHYST 0.09/0.02-28 (WATSON LABORATORIES) [Suspect]
     Indication: ORAL CONTRACEPTION
     Dosage: UNK, DAILY
     Route: 048
  2. MULTIVITAMIN                       /00097801/ [Concomitant]
     Indication: PRODUCT USED FOR UNKNOWN INDICATION
     Route: 065

REACTIONS (1)
  - Breast cancer [Not Recovered/Not Resolved]
